FAERS Safety Report 25478270 (Version 1)
Quarter: 2025Q2

REPORT INFORMATION
  Report Type: Spontaneous
  Country: CN (occurrence: CN)
  Receive Date: 20250625
  Receipt Date: 20250625
  Transmission Date: 20250717
  Serious: Yes (Death, Other)
  Sender: AMGEN
  Company Number: CN-AMGEN-CHNSP2025122485

PATIENT

DRUGS (5)
  1. BLINATUMOMAB [Suspect]
     Active Substance: BLINATUMOMAB
     Indication: Acute lymphocytic leukaemia
     Route: 065
  2. BLINATUMOMAB [Suspect]
     Active Substance: BLINATUMOMAB
     Indication: Chronic myeloid leukaemia
  3. BLINATUMOMAB [Suspect]
     Active Substance: BLINATUMOMAB
     Indication: Philadelphia chromosome positive
  4. OLVEREMBATINIB [Suspect]
     Active Substance: OLVEREMBATINIB
     Indication: Acute lymphocytic leukaemia
     Route: 048
  5. OLVEREMBATINIB [Suspect]
     Active Substance: OLVEREMBATINIB
     Indication: Chronic myeloid leukaemia

REACTIONS (19)
  - Death [Fatal]
  - Chronic myeloid leukaemia recurrent [Unknown]
  - Acute lymphocytic leukaemia recurrent [Unknown]
  - Central nervous system leukaemia [Unknown]
  - Hypertriglyceridaemia [Unknown]
  - Hyperuricaemia [Unknown]
  - Arterial occlusive disease [Unknown]
  - Blood creatine phosphokinase increased [Unknown]
  - Hepatic enzyme increased [Unknown]
  - Hyperbilirubinaemia [Unknown]
  - Drug resistance [Unknown]
  - Drug intolerance [Unknown]
  - Treatment failure [Unknown]
  - Unevaluable event [Unknown]
  - Pigmentation disorder [Unknown]
  - Proteinuria [Unknown]
  - Disease progression [Unknown]
  - Therapeutic product effect incomplete [Unknown]
  - Rash [Unknown]
